FAERS Safety Report 16575306 (Version 1)
Quarter: 2019Q3

REPORT INFORMATION
  Report Type: Spontaneous
  Country: CA (occurrence: CA)
  Receive Date: 20190716
  Receipt Date: 20190716
  Transmission Date: 20191004
  Serious: Yes (Other)
  Sender: FDA-Public Use
  Company Number: CA-CELLTRION INC.-2019CA022792

PATIENT

DRUGS (7)
  1. INFLECTRA [Suspect]
     Active Substance: INFLIXIMAB-DYYB
     Indication: CROHN^S DISEASE
     Dosage: 300 MG, (Q 0, 2, 6 WEEKS, THEN EVERY 8 WEEKS)
     Route: 042
  2. AZATHIOPRINE. [Concomitant]
     Active Substance: AZATHIOPRINE
     Dosage: 50 MG, 1X/DAY (WILL START A WEEK PRIOR TO STARTING INFLECTRA)
     Route: 048
  3. IRON [Concomitant]
     Active Substance: IRON
     Dosage: 1 DF (PILL), 1X/DAY
     Route: 065
  4. FLAGYL [METRONIDAZOLE BENZOATE] [Concomitant]
     Active Substance: METRONIDAZOLE BENZOATE
     Dosage: UNK UNK, 1X/DAY
     Route: 048
  5. METRONIDAZOLE. [Concomitant]
     Active Substance: METRONIDAZOLE
     Dosage: (FOR 4 WEEKS)
     Route: 065
  6. KEFLEX [Concomitant]
     Active Substance: CEPHALEXIN
     Dosage: 10 DAYS (ALMOST FINISHED)
     Route: 065
  7. CIPROFLOXACIN. [Concomitant]
     Active Substance: CIPROFLOXACIN
     Dosage: 1X/DAY (FOR 4 WEEKS)
     Route: 048

REACTIONS (5)
  - Anal fissure haemorrhage [Unknown]
  - Proctalgia [Unknown]
  - Fistula discharge [Unknown]
  - Anal fissure [Unknown]
  - Weight decreased [Unknown]
